FAERS Safety Report 9215296 (Version 1)
Quarter: 2013Q2

REPORT INFORMATION
  Report Type: Spontaneous
  Country: US (occurrence: US)
  Receive Date: 20130405
  Receipt Date: 20130405
  Transmission Date: 20140414
  Serious: Yes (Hospitalization)
  Sender: FDA-Public Use
  Company Number: US-GLAXOSMITHKLINE-A1013679A

PATIENT
  Age: 51 Year
  Sex: Male

DRUGS (1)
  1. VOTRIENT [Suspect]
     Indication: PRODUCT USED FOR UNKNOWN INDICATION
     Dosage: 800MG PER DAY
     Route: 065
     Dates: start: 20130129, end: 20130223

REACTIONS (4)
  - Small intestinal obstruction [Recovering/Resolving]
  - Diverticulitis [Recovering/Resolving]
  - Hospitalisation [Unknown]
  - Diarrhoea [Recovering/Resolving]
